FAERS Safety Report 10158482 (Version 1)
Quarter: 2014Q2

REPORT INFORMATION
  Report Type: Spontaneous
  Country: US (occurrence: US)
  Receive Date: 20140507
  Receipt Date: 20140507
  Transmission Date: 20141212
  Serious: No
  Sender: FDA-Public Use
  Company Number: US-AMGEN-USASP2013078952

PATIENT
  Age: 78 Year
  Sex: Male

DRUGS (11)
  1. ARANESP [Suspect]
     Indication: MYELODYSPLASTIC SYNDROME
     Dosage: UNK UNK, Q2WK
     Route: 065
  2. ASPIRIN [Concomitant]
     Dosage: 81 MG, UNK
     Route: 065
  3. BENTYL COMP [Concomitant]
     Dosage: 30 MG, AS NECESSARY
     Route: 065
  4. DILTIAZEM [Concomitant]
     Dosage: 120 MG, QD
     Route: 065
  5. FINASTERIDE [Concomitant]
     Dosage: 5 MG, QD
  6. OMEPRAZOLE [Concomitant]
     Dosage: 20 MG, QD
  7. ROPINIROLE [Concomitant]
     Dosage: 5 MG, QD
     Route: 065
  8. ANDROGEL [Concomitant]
     Dosage: UNK UNK, QD
     Route: 065
  9. VITAMIN D                          /00107901/ [Concomitant]
     Route: 065
  10. VITAMIN B12                        /07503801/ [Concomitant]
     Route: 065
  11. MULTIVITAMIN                       /00097801/ [Concomitant]
     Route: 065

REACTIONS (1)
  - Influenza like illness [Recovered/Resolved]
